FAERS Safety Report 12694331 (Version 1)
Quarter: 2016Q3

REPORT INFORMATION
  Report Type: Report from Study
  Country: ES (occurrence: ES)
  Receive Date: 20160829
  Receipt Date: 20160829
  Transmission Date: 20161109
  Serious: Yes (Hospitalization, Other)
  Sender: FDA-Public Use
  Company Number: ES-BRISTOL-MYERS SQUIBB COMPANY-1999SUS0681

PATIENT
  Age: 33 Year
  Sex: Female

DRUGS (4)
  1. NELFINAVIR [Concomitant]
     Active Substance: NELFINAVIR
     Indication: HIV INFECTION
     Route: 048
     Dates: start: 19990630, end: 19990703
  2. EFAVIRENZ [Suspect]
     Active Substance: EFAVIRENZ
     Indication: HIV INFECTION
     Route: 048
     Dates: start: 19990630, end: 19990703
  3. EFAVIRENZ W/EMTRICITABINE/TENOFOVIR DISOPROXI [Suspect]
     Active Substance: EFAVIRENZ\EMTRICITABINE\TENOFOVIR DISOPROXIL FUMARATE
     Indication: HIV INFECTION
     Route: 065
  4. ABACAVIR SULFATE. [Concomitant]
     Active Substance: ABACAVIR SULFATE
     Indication: HIV INFECTION
     Route: 048
     Dates: start: 19990630, end: 19990703

REACTIONS (10)
  - Psychotic disorder [Recovered/Resolved]
  - Suicide attempt [Recovered/Resolved]
  - Overdose [Recovered/Resolved]
  - Judgement impaired [Recovering/Resolving]
  - Thinking abnormal [Unknown]
  - Affect lability [Recovered/Resolved]
  - Irritability [Recovered/Resolved]
  - Mania [Recovered/Resolved]
  - Disinhibition [Recovered/Resolved]
  - Aggression [Recovered/Resolved]

NARRATIVE: CASE EVENT DATE: 19990702
